FAERS Safety Report 8593723-4 (Version None)
Quarter: 2012Q3

REPORT INFORMATION
  Report Type: 
  Country: None (occurrence: None)
  Receive Date: 20120725
  Receipt Date: 20120725
  Transmission Date: 20120928
  Serious: No
  Sender: FDA-Public Use
  Company Number: None

PATIENT
  Age: 74 Year
  Sex: Male
  Weight: 74.8435 kg

DRUGS (1)
  1. SPORT SUNSCREEN LOTION SPF 50 TARGET -UP + UP- [Suspect]
     Indication: PHOTOSENSITIVITY REACTION
     Dosage: ONCE DAILY -5D/WK- TOP
     Route: 061
     Dates: start: 20120601, end: 20120616

REACTIONS (2)
  - RASH [None]
  - PRURITUS [None]
